FAERS Safety Report 19856146 (Version 1)
Quarter: 2021Q3

REPORT INFORMATION
  Report Type: Spontaneous
  Country: ES (occurrence: ES)
  Receive Date: 20210920
  Receipt Date: 20210920
  Transmission Date: 20211014
  Serious: Yes (Life-Threatening)
  Sender: FDA-Public Use
  Company Number: ES-TEVA-2021-ES-1953479

PATIENT
  Age: 50 Year
  Sex: Male

DRUGS (3)
  1. AZILECT [Suspect]
     Active Substance: RASAGILINE MESYLATE
     Indication: PARKINSONISM
     Dosage: 1 MG
     Route: 048
     Dates: start: 2017
  2. MIRAPEXIN 0,18 MG COMPRIMIDOS, 30 COMPRIMIDOS [Concomitant]
     Indication: PARKINSONISM
     Route: 048
     Dates: start: 2017
  3. ENTACAPONA (2785A) [Suspect]
     Active Substance: ENTACAPONE
     Indication: PARKINSONISM
     Dosage: 200 MG
     Route: 048
     Dates: start: 20210805

REACTIONS (1)
  - Acute myocardial infarction [Recovering/Resolving]

NARRATIVE: CASE EVENT DATE: 20210813
